FAERS Safety Report 9644828 (Version 1)
Quarter: 2013Q4

REPORT INFORMATION
  Report Type: Spontaneous
  Country: US (occurrence: None)
  Receive Date: 20131023
  Receipt Date: 20131023
  Transmission Date: 20140711
  Serious: Yes (Other)
  Sender: FDA-Public Use
  Company Number: None

PATIENT
  Age: 42 Year
  Sex: Female
  Weight: 64.41 kg

DRUGS (1)
  1. CITALOPRAM 20MG TORRENT [Suspect]
     Indication: GENERALISED ANXIETY DISORDER
     Dosage: 1 PILL ONCE DAILY TAKEN BY MOUTH
     Route: 048
     Dates: start: 20090709, end: 20131004

REACTIONS (7)
  - Loss of consciousness [None]
  - Drug interaction [None]
  - Amnesia [None]
  - Serotonin syndrome [None]
  - Alcohol interaction [None]
  - Speech disorder [None]
  - Feeling abnormal [None]
